FAERS Safety Report 7453800-8 (Version None)
Quarter: 2011Q2

REPORT INFORMATION
  Report Type: 
  Country: None (occurrence: None)
  Receive Date: 20110502
  Receipt Date: 20110125
  Transmission Date: 20111010
  Serious: No
  Sender: FDA-Public Use
  Company Number: US-ASTRAZENECA-2011SE04377

PATIENT
  Age: 34 Year
  Sex: Female

DRUGS (11)
  1. BACTRIM [Concomitant]
  2. DIABETA [Concomitant]
  3. GLUCOPHAGE [Concomitant]
  4. MULTI-VITAMIN [Concomitant]
  5. NEXIUM [Suspect]
     Route: 048
  6. SEROQUEL [Suspect]
     Route: 048
  7. LEXAPRO [Concomitant]
  8. ASPIRIN [Concomitant]
  9. HYDRODIURIL [Concomitant]
  10. GRIS-PEG [Concomitant]
  11. CRESTOR [Suspect]
     Route: 048

REACTIONS (1)
  - BREAST CYST [None]
